FAERS Safety Report 8919317 (Version 1)
Quarter: 2012Q4

REPORT INFORMATION
  Report Type: 
  Country: US (occurrence: US)
  Receive Date: 20121121
  Receipt Date: 20121121
  Transmission Date: 20130627
  Serious: Yes (Other)
  Sender: FDA-Public Use
  Company Number: US-PFIZER INC-2012288395

PATIENT
  Sex: Male

DRUGS (2)
  1. DETROL LA [Suspect]
     Dosage: UNK
  2. CIALIS [Suspect]
     Dosage: UNK

REACTIONS (1)
  - Transient ischaemic attack [Unknown]
